FAERS Safety Report 5955375-9 (Version None)
Quarter: 2008Q4

REPORT INFORMATION
  Report Type: 
  Country: None (occurrence: None)
  Receive Date: 20081113
  Receipt Date: 20081113
  Transmission Date: 20090506
  Serious: No
  Sender: FDA-Public Use
  Company Number: None

PATIENT
  Age: 44 Year
  Sex: Female

DRUGS (1)
  1. LUBIPROSTONE [Suspect]
     Dosage: PO
     Route: 048
     Dates: start: 20070606, end: 20070608

REACTIONS (2)
  - NAUSEA [None]
  - VOMITING [None]
